FAERS Safety Report 6976822-X (Version None)
Quarter: 2010Q3

REPORT INFORMATION
  Report Type: 
  Country: None (occurrence: None)
  Receive Date: 20100910
  Receipt Date: 20100903
  Transmission Date: 20110219
  Serious: Yes (Other)
  Sender: FDA-Public Use
  Company Number: A0860267A

PATIENT
  Sex: Female
  Weight: 70 kg

DRUGS (4)
  1. TYKERB [Suspect]
     Dosage: 1250MG PER DAY
     Route: 048
     Dates: start: 20100414, end: 20100731
  2. XELODA [Concomitant]
     Dosage: 1500MG TWICE PER DAY
     Dates: start: 20100411
  3. IMODIUM [Concomitant]
  4. ATIVAN [Concomitant]
     Route: 065

REACTIONS (10)
  - BREAST CANCER METASTATIC [None]
  - DECREASED APPETITE [None]
  - DIARRHOEA [None]
  - LOCALISED INFECTION [None]
  - NAIL DISORDER [None]
  - PAIN IN EXTREMITY [None]
  - PALMAR-PLANTAR ERYTHRODYSAESTHESIA SYNDROME [None]
  - PARONYCHIA [None]
  - SKIN EXFOLIATION [None]
  - WEIGHT DECREASED [None]
